FAERS Safety Report 24789947 (Version 1)
Quarter: 2024Q4

REPORT INFORMATION
  Report Type: Report from Study
  Country: BR (occurrence: BR)
  Receive Date: 20241230
  Receipt Date: 20241230
  Transmission Date: 20250115
  Serious: Yes (Other)
  Sender: TAKEDA
  Company Number: BR-TAKEDA-2024TUS041394

PATIENT
  Age: 43 Year
  Sex: Female

DRUGS (8)
  1. HUMAN IMMUNOGLOBULIN G\HYALURONIDASE RECOMBINANT HUMAN [Suspect]
     Active Substance: HUMAN IMMUNOGLOBULIN G\HYALURONIDASE (HUMAN RECOMBINANT)
     Indication: Primary immunodeficiency syndrome
     Dosage: UNK UNK, Q4WEEKS
  2. HUMAN IMMUNOGLOBULIN G\HYALURONIDASE RECOMBINANT HUMAN [Suspect]
     Active Substance: HUMAN IMMUNOGLOBULIN G\HYALURONIDASE (HUMAN RECOMBINANT)
     Indication: Immunodeficiency
     Dosage: 55 GRAM, Q4WEEKS
     Dates: start: 20210806
  3. FLUTICASONE FUROATE\VILANTEROL TRIFENATATE [Concomitant]
     Active Substance: FLUTICASONE FUROATE\VILANTEROL TRIFENATATE
  4. BUDESONIDE [Concomitant]
     Active Substance: BUDESONIDE
  5. BENADRYL [Concomitant]
     Active Substance: DIPHENHYDRAMINE HYDROCHLORIDE
     Dosage: UNK
  6. ACETAMINOPHEN [Concomitant]
     Active Substance: ACETAMINOPHEN
     Dosage: UNK
  7. IMMUNE GLOBULIN NOS [Concomitant]
     Active Substance: IMMUNE GLOBULIN NOS
     Dosage: UNK UNK, Q2WEEKS
  8. PRIVIGEN [Concomitant]
     Active Substance: HUMAN IMMUNOGLOBULIN G
     Dosage: 55 GRAM

REACTIONS (19)
  - Interstitial lung disease [Unknown]
  - Evans syndrome [Unknown]
  - Hypercoagulation [Unknown]
  - Cavernous sinus thrombosis [Unknown]
  - Obesity [Unknown]
  - Hypertension [Unknown]
  - Dyslipidaemia [Unknown]
  - Insulin resistance [Unknown]
  - Cough [Unknown]
  - Dyspnoea [Unknown]
  - Pulmonary mass [Unknown]
  - Fatigue [Unknown]
  - Myopathy [Unknown]
  - Drug dependence [Unknown]
  - Haemolytic anaemia [Unknown]
  - Heart rate abnormal [Unknown]
  - Insurance issue [Unknown]
  - Product use issue [Unknown]
  - Inappropriate schedule of product administration [Unknown]

NARRATIVE: CASE EVENT DATE: 20230315
